FAERS Safety Report 9797626 (Version 1)
Quarter: 2014Q1

REPORT INFORMATION
  Report Type: Report from Study
  Country: US (occurrence: US)
  Receive Date: 20140106
  Receipt Date: 20140106
  Transmission Date: 20141002
  Serious: Yes (Death)
  Sender: FDA-Public Use
  Company Number: US-ROCHE-1329566

PATIENT
  Sex: Male

DRUGS (8)
  1. AVASTIN [Suspect]
     Indication: LUNG NEOPLASM MALIGNANT
     Dosage: 14/JUN/2011
     Route: 042
  2. AVASTIN [Suspect]
     Indication: METASTASES TO NERVOUS SYSTEM
     Dosage: 5/JUL/2011
     Route: 042
  3. AVASTIN [Suspect]
     Dosage: 2/AUG/2011
     Route: 042
  4. ALIMTA [Concomitant]
     Dosage: 14/JUN/2011, 5/JUL/2011 WITH NORMAL SALINE
     Route: 065
  5. ALIMTA [Concomitant]
     Dosage: 2/AUG/2011
     Route: 065
  6. VITAMIN B12 [Concomitant]
     Dosage: 5/JUL/2011
     Route: 058
  7. CARBOPLATIN [Concomitant]
  8. NORMAL SALINE [Concomitant]
     Dosage: 14/JUN/2011
     Route: 065

REACTIONS (1)
  - Death [Fatal]
